FAERS Safety Report 4840326-0 (Version None)
Quarter: 2005Q4

REPORT INFORMATION
  Report Type: 
  Country: None (occurrence: None)
  Receive Date: 20051031
  Receipt Date: 20050830
  Transmission Date: 20060501
  Serious: Yes (Other)
  Sender: FDA-Public Use
  Company Number: 200515792US

PATIENT
  Age: 82 Year
  Sex: Female

DRUGS (11)
  1. KETEK [Suspect]
     Indication: SINUSITIS
     Dosage: 400 MG BID
     Dates: start: 20050428
  2. PRILOSEC [Concomitant]
  3. PREDNISONE [Concomitant]
  4. CRESTOR [Concomitant]
  5. PLAVIX [Concomitant]
  6. LEVOTHYROXINE SODIUM (LEVOXYL) [Concomitant]
  7. ASPIRIN [Concomitant]
  8. ACTONEL [Concomitant]
  9. ALBUTEROL [Concomitant]
  10. CELEBREX [Concomitant]
  11. ISOSORBIDE [Concomitant]

REACTIONS (3)
  - DIPLOPIA [None]
  - VISION BLURRED [None]
  - VISUAL DISTURBANCE [None]
